FAERS Safety Report 19924702 (Version 1)
Quarter: 2021Q4

REPORT INFORMATION
  Report Type: Spontaneous
  Country: NP (occurrence: NP)
  Receive Date: 20211006
  Receipt Date: 20211006
  Transmission Date: 20220303
  Serious: No
  Sender: FDA-Public Use
  Company Number: NP-LUPIN PHARMACEUTICALS INC.-2021-18614

PATIENT
  Age: 52 Year
  Sex: Male

DRUGS (3)
  1. CLONIDINE [Suspect]
     Active Substance: CLONIDINE
     Indication: COVID-19 pneumonia
     Dosage: 100 MILLIGRAM (ON DAY 6)
     Route: 065
  2. CLONIDINE [Suspect]
     Active Substance: CLONIDINE
     Dosage: 200 MILLIGRAM (ON DAY 7)
     Route: 065
  3. CLONIDINE [Suspect]
     Active Substance: CLONIDINE
     Dosage: UNK (TAPERED ON DAY 10 AND STOPPED ON DAY 15)
     Route: 065

REACTIONS (1)
  - Off label use [Unknown]
